FAERS Safety Report 9520755 (Version 1)
Quarter: 2013Q3

REPORT INFORMATION
  Report Type: Spontaneous
  Country: US (occurrence: None)
  Receive Date: 20130911
  Receipt Date: 20130911
  Transmission Date: 20140515
  Serious: Yes (Other)
  Sender: FDA-Public Use
  Company Number: None

PATIENT
  Age: 76 Year
  Sex: Male

DRUGS (3)
  1. XTANDI 40MG ASTELLAS [Suspect]
     Indication: PROSTATE CANCER
     Dosage: 160MG QD PO
     Route: 048
     Dates: start: 20130201, end: 20130822
  2. LYRICA [Concomitant]
  3. PREDNISONE [Concomitant]

REACTIONS (3)
  - Drug ineffective [None]
  - Fatigue [None]
  - Decreased appetite [None]
